FAERS Safety Report 4550506-X (Version None)
Quarter: 2004Q4

REPORT INFORMATION
  Report Type: 
  Country: None (occurrence: None)
  Receive Date: 20041227
  Receipt Date: 20041116
  Transmission Date: 20050328
  Serious: No
  Sender: FDA-Public Use
  Company Number: 04P-163-0280732-00

PATIENT
  Age: 62 Year
  Sex: Female
  Weight: 68.0396 kg

DRUGS (7)
  1. HUMIRA [Suspect]
     Indication: RHEUMATOID ARTHRITIS
     Dosage: 40 MG, 1 IN 2 WK, SUBCUTANEOUS
     Route: 058
     Dates: start: 20040522
  2. METHOTREXATE [Concomitant]
  3. HYDROXYCHLOROQUINE PHOSPHATE [Concomitant]
  4. SULFASALAZINE ER [Concomitant]
  5. FOLIC ACID [Concomitant]
  6. BUCINDOLOL HYDROCHLORIDE [Concomitant]
  7. MULTI-VITAMINS [Concomitant]

REACTIONS (3)
  - INJECTION SITE PAIN [None]
  - LOWER LIMB FRACTURE [None]
  - MOUTH ULCERATION [None]
